FAERS Safety Report 9906424 (Version 1)
Quarter: 2014Q1

REPORT INFORMATION
  Report Type: Spontaneous
  Country: US (occurrence: US)
  Receive Date: 20140218
  Receipt Date: 20140218
  Transmission Date: 20141002
  Serious: No
  Sender: FDA-Public Use
  Company Number: US-GILEAD-2014-0094185

PATIENT
  Sex: Male

DRUGS (1)
  1. RANEXA [Suspect]
     Indication: MYOCARDIAL ISCHAEMIA
     Dosage: 1000 MG, UNK
     Route: 048
     Dates: start: 201312

REACTIONS (2)
  - Haemoglobin decreased [Unknown]
  - Blood iron decreased [Unknown]
